FAERS Safety Report 4846849-2 (Version None)
Quarter: 2005Q4

REPORT INFORMATION
  Report Type: 
  Country: None (occurrence: None)
  Receive Date: 20051207
  Receipt Date: 20050302
  Transmission Date: 20060501
  Serious: No
  Sender: FDA-Public Use
  Company Number: US-BRISTOL-MYERS SQUIBB COMPANY-12883310

PATIENT
  Age: 48 Year
  Sex: Male
  Weight: 78 kg

DRUGS (10)
  1. VIDEX EC [Suspect]
     Indication: HIV INFECTION
  2. HYDROXYUREA [Concomitant]
  3. PRAVACHOL [Concomitant]
  4. VIRAMUNE [Concomitant]
  5. VIREAD [Concomitant]
  6. ATENOLOL [Concomitant]
  7. LOTENSIN [Concomitant]
  8. EFFEXOR [Concomitant]
  9. NUTROPIN [Concomitant]
  10. ANDROGEN [Concomitant]

REACTIONS (1)
  - SLEEP PHASE RHYTHM DISTURBANCE [None]
